FAERS Safety Report 17076155 (Version 2)
Quarter: 2019Q4

REPORT INFORMATION
  Report Type: Spontaneous
  Country: US (occurrence: US)
  Receive Date: 20191126
  Receipt Date: 20191212
  Transmission Date: 20200122
  Serious: No
  Sender: FDA-Public Use
  Company Number: US-ACELRX PHARMACEUTICALS, INC-ACEL20192441

PATIENT
  Age: 45 Year
  Sex: Female

DRUGS (4)
  1. GAS/SEVO [Concomitant]
     Indication: SURGERY
     Dosage: UNKNOWN
     Route: 007
     Dates: start: 20191105, end: 20191105
  2. PROPOFOL. [Concomitant]
     Active Substance: PROPOFOL
     Indication: SURGERY
     Dosage: UNKNOWN
     Dates: start: 20191105, end: 20191105
  3. DSUVIA [Suspect]
     Active Substance: SUFENTANIL
     Indication: PROCEDURAL PAIN
     Dosage: 2 DOSES
     Route: 060
     Dates: start: 20191105, end: 20191105
  4. FENTANYL. [Concomitant]
     Active Substance: FENTANYL
     Indication: SURGERY
     Dosage: UNKNOWN
     Dates: start: 20191105, end: 20191105

REACTIONS (2)
  - Vomiting [Recovered/Resolved]
  - Nausea [Recovered/Resolved]

NARRATIVE: CASE EVENT DATE: 20191105
